FAERS Safety Report 5400575-X (Version None)
Quarter: 2007Q3

REPORT INFORMATION
  Report Type: 
  Country: None (occurrence: None)
  Receive Date: 20070730
  Receipt Date: 20070412
  Transmission Date: 20080115
  Serious: Yes (Hospitalization)
  Sender: FDA-Public Use
  Company Number: A0644295A

PATIENT
  Age: 43 Year
  Sex: Male

DRUGS (5)
  1. ZANTAC 150 [Suspect]
     Dosage: 150MG TWICE PER DAY
     Route: 048
     Dates: start: 20070305, end: 20070316
  2. CELEXA [Concomitant]
  3. LAMICTAL [Concomitant]
  4. VITAMIN B6 [Concomitant]
  5. EXCEDRIN (MIGRAINE) [Concomitant]

REACTIONS (3)
  - HYPERSENSITIVITY [None]
  - RASH [None]
  - URTICARIA [None]
